FAERS Safety Report 18645612 (Version 3)
Quarter: 2021Q1

REPORT INFORMATION
  Report Type: Other
  Country: US (occurrence: US)
  Receive Date: 20201222
  Receipt Date: 20210128
  Transmission Date: 20210419
  Serious: Yes (Death, Other)
  Sender: FDA-Public Use
  Company Number: US-ROCHE-2144155

PATIENT
  Age: 59 Year
  Sex: Male

DRUGS (9)
  1. OCREVUS [Suspect]
     Active Substance: OCRELIZUMAB
     Route: 042
  2. GABAPENTIN. [Concomitant]
     Active Substance: GABAPENTIN
  3. CRANBERRY. [Concomitant]
     Active Substance: CRANBERRY
  4. OXYBUTYNIN. [Concomitant]
     Active Substance: OXYBUTYNIN CHLORIDE
  5. OCREVUS [Suspect]
     Active Substance: OCRELIZUMAB
     Indication: MULTIPLE SCLEROSIS
     Route: 042
  6. BACLOFEN. [Concomitant]
     Active Substance: BACLOFEN
  7. SENNA ALEXANDRINA [Concomitant]
     Active Substance: SENNA LEAF
  8. OCREVUS [Suspect]
     Active Substance: OCRELIZUMAB
     Indication: PRIMARY PROGRESSIVE MULTIPLE SCLEROSIS
     Dosage: DATE OF TREATMENT: 20/JUL/2017, 03/AUG/2017, 25/JAN/2018, 19/JUL/2018, 15/JAN/2019, 09/JUN/2019, 16/
     Route: 042
     Dates: start: 20170720
  9. METAXALONE. [Concomitant]
     Active Substance: METAXALONE

REACTIONS (6)
  - Multiple organ dysfunction syndrome [Fatal]
  - Clostridial sepsis [Fatal]
  - Gait disturbance [Unknown]
  - Fall [Unknown]
  - Drug ineffective [Unknown]
  - Multiple sclerosis [Unknown]

NARRATIVE: CASE EVENT DATE: 20200611
